FAERS Safety Report 8460108-0 (Version None)
Quarter: 2012Q2

REPORT INFORMATION
  Report Type: 
  Country: None (occurrence: None)
  Receive Date: 20120622
  Receipt Date: 20120618
  Transmission Date: 20120825
  Serious: Yes (Death)
  Sender: FDA-Public Use
  Company Number: JP-ELI_LILLY_AND_COMPANY-JP201205010430

PATIENT
  Sex: Female
  Weight: 57 kg

DRUGS (16)
  1. BETAMETHASONE [Concomitant]
     Indication: PROPHYLAXIS
     Dosage: 2 MG, UNK
     Route: 042
     Dates: start: 20120528, end: 20120528
  2. OXYCONTIN [Concomitant]
     Dosage: 10 MG, UNK
     Route: 048
     Dates: start: 20120516, end: 20120528
  3. OXYCONTIN [Concomitant]
     Dosage: 15 MG, UNK
     Route: 048
     Dates: start: 20120529, end: 20120529
  4. GEMZAR [Suspect]
     Indication: PANCREATIC CARCINOMA STAGE IV
     Dosage: 1500 MG, UNK
     Route: 042
     Dates: start: 20120528, end: 20120528
  5. BUP-4 [Concomitant]
     Dosage: 20 MG, UNK
     Dates: start: 20120510, end: 20120530
  6. FERROUS CITRATE [Concomitant]
     Dosage: 100 MG, UNK
     Route: 048
     Dates: start: 20120510, end: 20120530
  7. RABEPRAZOLE SODIUM [Concomitant]
     Dosage: 10 MG, UNK
     Route: 048
     Dates: start: 20120511, end: 20120530
  8. GRANISETRON HYDROCHLORIDE [Concomitant]
     Indication: PROPHYLAXIS
     Dosage: 1 MG, UNK
     Route: 042
     Dates: start: 20120528, end: 20120528
  9. SUNRYTHM [Concomitant]
     Dosage: 75 MG, UNK
     Route: 048
     Dates: start: 20120510, end: 20120530
  10. WYSTAL [Concomitant]
     Dosage: UNK
     Dates: start: 20120528, end: 20120528
  11. OXYCONTIN [Concomitant]
     Dosage: 10 MG, UNK
     Route: 048
     Dates: start: 20120530, end: 20120530
  12. PROCHLORPERAZINE [Concomitant]
     Dosage: 15 MG, UNK
     Route: 048
     Dates: start: 20120516, end: 20120530
  13. WYSTAL [Concomitant]
     Dosage: UNK
     Dates: start: 20120515, end: 20120515
  14. WYSTAL [Concomitant]
     Dosage: UNK
     Dates: start: 20120529, end: 20120529
  15. PRAVASTATIN [Concomitant]
     Dosage: UNK
     Route: 048
     Dates: start: 20120510, end: 20120530
  16. LOXONIN [Concomitant]
     Dosage: 180 MG, UNK
     Route: 048
     Dates: start: 20120510, end: 20120530

REACTIONS (2)
  - HEPATITIS FULMINANT [None]
  - CIRCULATORY COLLAPSE [None]
